FAERS Safety Report 5015480-0 (Version None)
Quarter: 2006Q2

REPORT INFORMATION
  Report Type: 
  Country: None (occurrence: None)
  Receive Date: 20060530
  Receipt Date: 20060530
  Transmission Date: 20061013
  Serious: Yes (Other)
  Sender: FDA-Public Use
  Company Number: None

PATIENT
  Age: 67 Year
  Sex: Male
  Weight: 102.1 kg

DRUGS (3)
  1. ZOCOR [Suspect]
  2. ATENOLOL [Concomitant]
  3. FELODIPINE [Concomitant]

REACTIONS (1)
  - MYALGIA [None]
